FAERS Safety Report 18559770 (Version 2)
Quarter: 2021Q1

REPORT INFORMATION
  Report Type: Spontaneous
  Country: US (occurrence: US)
  Receive Date: 20201130
  Receipt Date: 20210315
  Transmission Date: 20210419
  Serious: Yes (Other)
  Sender: FDA-Public Use
  Company Number: US-TAKEDA-2020TUS052719

PATIENT
  Sex: Female
  Weight: 96.15 kg

DRUGS (34)
  1. VICTOZA [Concomitant]
     Active Substance: LIRAGLUTIDE
  2. LASIX [Concomitant]
     Active Substance: FUROSEMIDE
  3. SINGULAIR [Concomitant]
     Active Substance: MONTELUKAST SODIUM
  4. LANTUS [Concomitant]
     Active Substance: INSULIN GLARGINE
  5. ALLOPURINOL. [Concomitant]
     Active Substance: ALLOPURINOL
  6. VITAMIN D3 [Concomitant]
     Active Substance: CHOLECALCIFEROL
  7. GARLIC [ALLIUM SATIVUM] [Concomitant]
     Active Substance: GARLIC
  8. PLAVIX [Concomitant]
     Active Substance: CLOPIDOGREL BISULFATE
  9. MUCINEX [Concomitant]
     Active Substance: GUAIFENESIN
  10. DIPHENHYDRAMINE. [Concomitant]
     Active Substance: DIPHENHYDRAMINE
  11. PRAVASTATIN SODIUM. [Concomitant]
     Active Substance: PRAVASTATIN SODIUM
  12. POTASSIUM [Concomitant]
     Active Substance: POTASSIUM
  13. FLORAJEN3 [Concomitant]
  14. ALPHA LIPOIC ACID [Concomitant]
     Active Substance: .ALPHA.-LIPOIC ACID
  15. GLUTATHIONE [Concomitant]
     Active Substance: GLUTATHIONE
  16. PREDNISONE. [Concomitant]
     Active Substance: PREDNISONE
  17. SYMBICORT [Concomitant]
     Active Substance: BUDESONIDE\FORMOTEROL FUMARATE DIHYDRATE
  18. GAMMAGARD LIQUID [Suspect]
     Active Substance: HUMAN IMMUNOGLOBULIN G
     Indication: IMMUNODEFICIENCY COMMON VARIABLE
     Dosage: 10 GRAM, 1/WEEK
     Route: 058
     Dates: start: 20190406
  19. OXYGEN. [Concomitant]
     Active Substance: OXYGEN
  20. MIRALAX [Concomitant]
     Active Substance: POLYETHYLENE GLYCOL 3350
  21. PROTONIX [OMEPRAZOLE] [Concomitant]
     Active Substance: OMEPRAZOLE
  22. NOVOLOG [Concomitant]
     Active Substance: INSULIN ASPART
  23. VENTOLIN [Concomitant]
     Active Substance: ALBUTEROL SULFATE
  24. TRETINOIN. [Concomitant]
     Active Substance: TRETINOIN
  25. SUDOGEST [Concomitant]
     Active Substance: PSEUDOEPHEDRINE HYDROCHLORIDE
  26. COENZYME Q10 [Concomitant]
     Active Substance: DIETARY SUPPLEMENT\UBIDECARENONE
  27. ACETAMINOPHEN. [Concomitant]
     Active Substance: ACETAMINOPHEN
  28. LIDOCAINE [LIDOCAINE HYDROCHLORIDE] [Concomitant]
     Active Substance: LIDOCAINE HYDROCHLORIDE
  29. FOSAMAX [Concomitant]
     Active Substance: ALENDRONATE SODIUM
  30. NASACORT [Concomitant]
     Active Substance: TRIAMCINOLONE ACETONIDE
  31. EPINEPHRINE. [Concomitant]
     Active Substance: EPINEPHRINE
  32. OXYCODONE AND ACETAMINOPHEN [Concomitant]
     Active Substance: ACETAMINOPHEN\OXYCODONE HYDROCHLORIDE
  33. ELIQUIS [Concomitant]
     Active Substance: APIXABAN
  34. ALBUTEROL SULFATE. [Concomitant]
     Active Substance: ALBUTEROL SULFATE

REACTIONS (5)
  - Illness [Unknown]
  - Pleural effusion [Unknown]
  - Cardiac infection [Unknown]
  - Decreased appetite [Unknown]
  - Atrial fibrillation [Unknown]
